FAERS Safety Report 6978406-6 (Version None)
Quarter: 2010Q3

REPORT INFORMATION
  Report Type: 
  Country: None (occurrence: None)
  Receive Date: 20100913
  Receipt Date: 20100902
  Transmission Date: 20110219
  Serious: Yes (Death)
  Sender: FDA-Public Use
  Company Number: US-EISAI INC.-E7867-00153-SPO-US

PATIENT
  Age: 53 Year
  Sex: Female

DRUGS (2)
  1. GLIADEL [Suspect]
     Indication: GLIOBLASTOMA MULTIFORME
     Dosage: UNKNOWN
     Route: 018
     Dates: start: 20000726
  2. DEXAMETHASONE [Concomitant]

REACTIONS (9)
  - BRAIN OEDEMA [None]
  - FACIAL PARESIS [None]
  - HEADACHE [None]
  - HEMIANOPIA HOMONYMOUS [None]
  - HEMIPARESIS [None]
  - MOOD ALTERED [None]
  - SENSORY LOSS [None]
  - SOMNOLENCE [None]
  - VOMITING [None]
